FAERS Safety Report 6031362-X (Version None)
Quarter: 2008Q4

REPORT INFORMATION
  Report Type: 
  Country: None (occurrence: None)
  Receive Date: 20081224
  Receipt Date: 20080731
  Transmission Date: 20090506
  Serious: Yes (Hospitalization, Other)
  Sender: FDA-Public Use
  Company Number: US-CVT-080049

PATIENT
  Age: 83 Year
  Sex: Female
  Weight: 68.6 kg

DRUGS (23)
  1. RANEXA [Suspect]
     Indication: ANGINA PECTORIS
     Dosage: 500 MG, BID, ORAL
     Route: 048
     Dates: start: 20080313, end: 20080326
  2. DULCOLAX [Concomitant]
  3. SINGULAIR /01362601/ (MONTELUKAST) [Concomitant]
  4. PREDNISONE /00044701/ (PREDNISONE) [Concomitant]
  5. NITROGLYCERIN [Concomitant]
  6. SYNTHROID [Concomitant]
  7. LIPITOR [Concomitant]
  8. ADVAIR DISKUS 100/50 [Concomitant]
  9. PERCOCET [Concomitant]
  10. EFFEXOR /01233801/ (VENLAFAXINE) [Concomitant]
  11. ASPIRIN [Concomitant]
  12. VIGAMOX (MOXIFLOXACIN) [Concomitant]
  13. ACULAR [Concomitant]
  14. TOBRADEX [Concomitant]
  15. MIRAPEX [Concomitant]
  16. ZYLOPRIM [Concomitant]
  17. ACETAMINOPHEN [Concomitant]
  18. BROVANA (ARFORMOTEROL TARTRATE) [Concomitant]
  19. ZOFRAN [Concomitant]
  20. PROTONIX /01263201/ (PANTOPRAZOLE) [Concomitant]
  21. SENOKOT /00142201/ (SENNA ALEXANDRINA) [Concomitant]
  22. NEPHROKAPS (NEPHROKAPS) [Concomitant]
  23. VITAMIN E /00110501/ (TOCOPHEROL) [Concomitant]

REACTIONS (5)
  - BRONCHITIS [None]
  - CONTUSION [None]
  - DIZZINESS [None]
  - FALL [None]
  - TREMOR [None]
